FAERS Safety Report 4633234-1 (Version None)
Quarter: 2005Q2

REPORT INFORMATION
  Report Type: 
  Country: None (occurrence: None)
  Receive Date: 20050408
  Receipt Date: 20050328
  Transmission Date: 20051028
  Serious: Yes (Death, Life-Threatening, Hospitalization)
  Sender: FDA-Public Use
  Company Number: 2005034566

PATIENT
  Age: 94 Year
  Sex: Male

DRUGS (10)
  1. SULPERAZON (SULBACTAM, CEFOPERAZONE) [Suspect]
     Indication: BILIARY TRACT INFECTION
     Dosage: 2 GRAM, INTRAVENOUS
     Route: 042
     Dates: start: 20050216, end: 20050221
  2. BROMHEXINE HYDROCHLORIDE (BROMHEXINE HYDROCHLORIDE) [Suspect]
     Indication: PNEUMONIA ASPIRATION
     Dosage: INTRAVENOUS
     Route: 042
     Dates: start: 20050205, end: 20050216
  3. MINOCYCLINE HYDROCHLORIDE [Suspect]
     Indication: PNEUMONIA ASPIRATION
     Dosage: 200 MG (200 MG, 1 IN 1D), INTRAVENOUS
     Route: 042
     Dates: start: 20050207, end: 20050212
  4. LACTATED RINGER'S [Suspect]
     Indication: ILL-DEFINED DISORDER
     Dosage: INTRAVENOUS
     Route: 042
     Dates: start: 20050205, end: 20050217
  5. TEICOPLANIN (TEICOPLANIN) [Suspect]
     Indication: PNEUMONIA ASPIRATION
     Dosage: 400 MG (400 MG, 1 IN 1 D), INTTRAVENOUS
     Route: 042
     Dates: start: 20050209, end: 20050214
  6. CEFEPIME HYDROCHLORIDE (CEFEPIME HYDROCHLORIDE) [Suspect]
     Indication: PNEUMONIA ASPIRATION
     Dosage: 2 GRAM (1 GRAM, 2 IN 1 D), INTRAVENOUS
     Route: 042
     Dates: start: 20050204, end: 20050208
  7. AMINO ACIDS/ELECTROLYTES/GLUCOSE/VITAMINS (AMINO ACIDS NOS, ELECTROLYT [Suspect]
     Indication: NUTRITIONAL SUPPORT
     Dosage: INTRAVENOUS
     Route: 042
     Dates: start: 20050209, end: 20050216
  8. METOCLOPRAMIDE (METOCLOPRAMIDE0 [Concomitant]
  9. METOCLOPRAMIDE [Concomitant]
  10. INSULIN HUMAN (INSULIN HUMAN) [Concomitant]

REACTIONS (12)
  - ALANINE AMINOTRANSFERASE INCREASED [None]
  - ASPARTATE AMINOTRANSFERASE INCREASED [None]
  - CANDIDIASIS [None]
  - CARDIAC FAILURE [None]
  - HEPATIC ENZYME INCREASED [None]
  - HEPATIC FUNCTION ABNORMAL [None]
  - JAUNDICE [None]
  - LIVER DISORDER [None]
  - METHICILLIN-RESISTANT STAPHYLOCOCCAL AUREUS TEST POSITIVE [None]
  - PLEURAL EFFUSION [None]
  - PNEUMONIA ASPIRATION [None]
  - RESPIRATORY ARREST [None]
